FAERS Safety Report 8887236 (Version 2)
Quarter: 2012Q4

REPORT INFORMATION
  Report Type: Report from Study
  Country: AT (occurrence: AT)
  Receive Date: 20121101
  Receipt Date: 20121115
  Transmission Date: 20130627
  Serious: Yes (Life-Threatening)
  Sender: FDA-Public Use
  Company Number: AT-AMGEN-AUTNI2012069833

PATIENT
  Age: 74 Year
  Sex: Male
  Weight: 75 kg

DRUGS (7)
  1. PEGFILGRASTIM [Suspect]
     Indication: NON-HODGKIN^S LYMPHOMA
     Dosage: 6 mg, UNK
     Route: 058
     Dates: start: 20110826
  2. RITUXIMAB [Concomitant]
  3. DEXAMETHASONE [Concomitant]
  4. CYTARABINE [Concomitant]
  5. CISPLATIN [Concomitant]
  6. PANTOLOC [Concomitant]
     Indication: GASTRITIS PROPHYLAXIS
     Dosage: 40 mg, qd
     Route: 048
  7. PASPERTIN [Concomitant]
     Indication: NAUSEA
     Dosage: 20 Gtt, qd
     Route: 048

REACTIONS (1)
  - Thrombocytopenia [Recovered/Resolved]
